FAERS Safety Report 8769253 (Version 2)
Quarter: 2012Q4

REPORT INFORMATION
  Report Type: 
  Country: US (occurrence: US)
  Receive Date: 20120905
  Receipt Date: 20120914
  Transmission Date: 20130627
  Serious: Yes (Death, Life-Threatening, Hospitalization, Disabling, Other)
  Sender: FDA-Public Use
  Company Number: US-009507513-1208USA010021

PATIENT

DRUGS (19)
  1. NUVARING [Suspect]
     Indication: CONTRACEPTION
     Dosage: 1 DF, UNK
     Dates: start: 20110903, end: 20110924
  2. CINRYZE [Suspect]
     Indication: HEREDITARY ANGIOEDEMA
     Dosage: 1000 IU, prn
     Route: 042
     Dates: start: 200910
  3. CINRYZE [Suspect]
     Dosage: 1000 IU, prn
     Route: 042
     Dates: start: 20101127
  4. CINRYZE [Suspect]
     Dosage: 1000 IU, prn
     Route: 042
     Dates: start: 20110824
  5. CINRYZE [Suspect]
     Dosage: 1000 IU, prn
     Route: 042
     Dates: start: 20111107
  6. CINRYZE [Suspect]
     Dosage: 1000 IU, prn
     Route: 042
     Dates: start: 20120206
  7. CINRYZE [Suspect]
     Dosage: 1000 IU, prn
     Route: 042
     Dates: start: 20120213
  8. CINRYZE [Suspect]
     Dosage: 1000 IU, prn
     Route: 042
     Dates: start: 20120628
  9. CINRYZE [Suspect]
     Dosage: 1000 IU, prn
     Route: 042
     Dates: start: 20120709
  10. ORTHO TRI CYCLEN [Suspect]
     Indication: CONTRACEPTION
     Dosage: 0.025 mg, qd
  11. EPIPEN [Concomitant]
     Indication: HYPERSENSITIVITY
     Dosage: 0.3 mg, prn
     Route: 030
  12. CLONAZEPAM [Concomitant]
     Indication: ANXIETY
     Dosage: 0.5 mg, bid
     Route: 048
  13. FEXOFENADINE HYDROCHLORIDE [Concomitant]
     Indication: SEASONAL ALLERGY
     Dosage: 180 mg, qd
     Route: 048
  14. METOPROLOL [Concomitant]
     Indication: HYPERTENSION
     Dosage: 25 mg, bid
  15. NORTRIPTYLINE [Concomitant]
     Dosage: 25 mg, bid
  16. PRILOSEC [Concomitant]
     Indication: GASTROOESOPHAGEAL REFLUX DISEASE
     Dosage: 20 mg, qd
     Route: 048
  17. CITALOPRAM [Concomitant]
     Indication: DEPRESSION
     Dosage: 20 mg, qd
     Route: 048
  18. MELATONIN [Concomitant]
     Indication: INSOMNIA
     Dosage: 3 mg, prn
     Route: 048
  19. REMERON [Concomitant]
     Dosage: 15 mg, qd
     Route: 048

REACTIONS (16)
  - Cardiac arrest [Fatal]
  - Pulmonary embolism [Fatal]
  - Cerebral infarction [Recovered/Resolved with Sequelae]
  - Brain oedema [Recovered/Resolved with Sequelae]
  - Craniectomy [Recovered/Resolved with Sequelae]
  - Loss of consciousness [Unknown]
  - Syncope [Unknown]
  - Convulsion [Unknown]
  - Blood pressure systolic decreased [Unknown]
  - Hypotension [Unknown]
  - Electrocardiogram ST-T segment abnormal [Unknown]
  - Dizziness [Unknown]
  - Nausea [Unknown]
  - Abdominal pain [Unknown]
  - Asthenia [Unknown]
  - Abdominal distension [Recovered/Resolved]
